FAERS Safety Report 20635770 (Version 1)
Quarter: 2022Q1

REPORT INFORMATION
  Report Type: Spontaneous
  Country: NO (occurrence: None)
  Receive Date: 20220325
  Receipt Date: 20220325
  Transmission Date: 20220423
  Serious: No
  Sender: FDA-Public Use
  Company Number: NO-Spark Therapeutics, Inc.-NO-SPK-22-00010

PATIENT
  Age: 32 Year
  Sex: Male

DRUGS (2)
  1. LUXTURNA [Suspect]
     Active Substance: VORETIGENE NEPARVOVEC-RZYL
     Indication: Hereditary retinal dystrophy
     Dosage: TWO TIMES WITH A WEEK BETWEEN
     Dates: start: 20210817
  2. LUXTURNA [Suspect]
     Active Substance: VORETIGENE NEPARVOVEC-RZYL
     Indication: Hereditary retinal dystrophy
     Dates: start: 20210817

REACTIONS (1)
  - Retinal degeneration [Recovering/Resolving]

NARRATIVE: CASE EVENT DATE: 20210903
